FAERS Safety Report 16639100 (Version 1)
Quarter: 2019Q3

REPORT INFORMATION
  Report Type: Spontaneous
  Country: GB (occurrence: GB)
  Receive Date: 20190726
  Receipt Date: 20190726
  Transmission Date: 20191004
  Serious: Yes (Disabling, Other)
  Sender: FDA-Public Use
  Company Number: GB-TEVA-2019-GB-1083799

PATIENT
  Age: 75 Year
  Sex: Male
  Weight: 92 kg

DRUGS (11)
  1. TIOTROPIUM [Concomitant]
     Active Substance: TIOTROPIUM
  2. CARBOCISTEINE [Concomitant]
     Active Substance: CARBOCYSTEINE
  3. ACETYLSALICYLIC ACID [Concomitant]
     Active Substance: ASPIRIN
  4. LANSOPRAZOLE. [Concomitant]
     Active Substance: LANSOPRAZOLE
  5. CLOPIDOGREL [Concomitant]
     Active Substance: CLOPIDOGREL BISULFATE
  6. CLARITHROMYCIN. [Suspect]
     Active Substance: CLARITHROMYCIN
     Indication: INFECTION
     Route: 048
     Dates: start: 20190425
  7. BISOPROLOL [Concomitant]
     Active Substance: BISOPROLOL
  8. TAMSULOSIN [Concomitant]
     Active Substance: TAMSULOSIN
  9. LOSARTAN. [Concomitant]
     Active Substance: LOSARTAN
  10. SALBUTAMOL [Concomitant]
     Active Substance: ALBUTEROL
  11. ISOSORBIDE MONONITRATE. [Concomitant]
     Active Substance: ISOSORBIDE MONONITRATE

REACTIONS (1)
  - Tendon rupture [Recovering/Resolving]

NARRATIVE: CASE EVENT DATE: 20190505
